FAERS Safety Report 4629412-8 (Version None)
Quarter: 2005Q2

REPORT INFORMATION
  Report Type: 
  Country: None (occurrence: None)
  Receive Date: 20050405
  Receipt Date: 20050324
  Transmission Date: 20051028
  Serious: Yes (Hospitalization)
  Sender: FDA-Public Use
  Company Number: CIP05000453

PATIENT
  Age: 70 Year
  Sex: Female

DRUGS (6)
  1. RISEDRONATE SODIUM [Suspect]
     Indication: SPINAL COMPRESSION FRACTURE
     Dosage: 2.5 MG DAILY, ORAL
     Route: 048
     Dates: start: 20040810, end: 20040811
  2. ELCITONIN (ELCATONIN) [Suspect]
     Indication: COMPRESSION FRACTURE
     Dosage: 1 DF, DAILY, INTRAMUSCULAR
     Route: 030
     Dates: start: 20040810, end: 20040810
  3. VOLTAREN [Concomitant]
  4. ASPARA-CA (ASPARTATE CALCIUM) [Concomitant]
  5. AMOBAN (ZOPICLONE) [Concomitant]
  6. PURSENNID  /SCH/ (SENNOSIDE A+B CALCIUM, SENNOSIDE A+B) [Concomitant]

REACTIONS (17)
  - ASCITES [None]
  - BLOOD LACTATE DEHYDROGENASE INCREASED [None]
  - CHOLELITHIASIS [None]
  - COLITIS [None]
  - COLITIS ULCERATIVE [None]
  - COLONIC STENOSIS [None]
  - COXSACKIE VIRAL INFECTION [None]
  - COXSACKIE VIRUS SEROLOGY TEST POSITIVE [None]
  - ERYTHEMA [None]
  - LYMPHOCYTE COUNT DECREASED [None]
  - MONOCYTE COUNT INCREASED [None]
  - NEUTROPHIL COUNT INCREASED [None]
  - OXYGEN SATURATION DECREASED [None]
  - PANCREATITIS ACUTE [None]
  - PLEURAL EFFUSION [None]
  - PSEUDODIVERTICULAR DISEASE [None]
  - RED BLOOD CELL COUNT INCREASED [None]
